FAERS Safety Report 22830961 (Version 3)
Quarter: 2023Q4

REPORT INFORMATION
  Report Type: Spontaneous
  Country: FR (occurrence: FR)
  Receive Date: 20230817
  Receipt Date: 20231015
  Transmission Date: 20240109
  Serious: No
  Sender: FDA-Public Use
  Company Number: FR-JNJFOC-20230801534

PATIENT
  Age: 57 Year
  Sex: Female

DRUGS (1)
  1. SIMPONI [Suspect]
     Active Substance: GOLIMUMAB
     Indication: Product used for unknown indication
     Dosage: STRENGTH: 50.00 MG / 0.50 ML
     Route: 058

REACTIONS (5)
  - Device deployment issue [Unknown]
  - Device issue [Unknown]
  - Needle issue [Unknown]
  - Accidental exposure to product [Unknown]
  - Inappropriate schedule of product administration [Unknown]

NARRATIVE: CASE EVENT DATE: 20230730
